FAERS Safety Report 9931971 (Version 1)
Quarter: 2014Q1

REPORT INFORMATION
  Report Type: Spontaneous
  Country: US (occurrence: None)
  Receive Date: 20140226
  Receipt Date: 20140226
  Transmission Date: 20141002
  Serious: No
  Sender: FDA-Public Use
  Company Number: SYM-2013-04191

PATIENT
  Age: 70 Year
  Sex: Female

DRUGS (2)
  1. DILTIAZEM [Suspect]
     Indication: HYPERTENSION
     Dates: start: 2012
  2. METFORMIN [Concomitant]

REACTIONS (1)
  - Blood glucose increased [None]
